FAERS Safety Report 18435990 (Version 1)
Quarter: 2020Q4

REPORT INFORMATION
  Report Type: Spontaneous
  Country: US (occurrence: US)
  Receive Date: 20201028
  Receipt Date: 20201028
  Transmission Date: 20210114
  Serious: Yes (Death)
  Sender: FDA-Public Use
  Company Number: None

PATIENT
  Age: 96 Year
  Sex: Male

DRUGS (1)
  1. XGEVA [Suspect]
     Active Substance: DENOSUMAB
     Dosage: 120MG/1.7ML
     Route: 058
     Dates: start: 20200407, end: 20200929

REACTIONS (1)
  - Death [None]

NARRATIVE: CASE EVENT DATE: 20201026
